FAERS Safety Report 17502279 (Version 2)
Quarter: 2020Q2

REPORT INFORMATION
  Report Type: Spontaneous
  Country: US (occurrence: US)
  Receive Date: 20200305
  Receipt Date: 20200410
  Transmission Date: 20200713
  Serious: No
  Sender: FDA-Public Use
  Company Number: US-BAUSCH-BL-2020-006082

PATIENT
  Sex: Female

DRUGS (3)
  1. LOTEMAX [Suspect]
     Active Substance: LOTEPREDNOL ETABONATE
     Indication: EYELID EXFOLIATION
     Dosage: AT BEDTIME
     Route: 047
     Dates: start: 20200217, end: 202002
  2. LOTEMAX [Suspect]
     Active Substance: LOTEPREDNOL ETABONATE
     Indication: SWELLING OF EYELID
     Dosage: IN THE EVENING AT BEDTIME
     Route: 047
     Dates: start: 20200214, end: 202002
  3. LOTEMAX [Suspect]
     Active Substance: LOTEPREDNOL ETABONATE
     Indication: PRODUCT USE IN UNAPPROVED INDICATION

REACTIONS (7)
  - Swelling face [Unknown]
  - Burning sensation [Recovered/Resolved]
  - Swelling of eyelid [Recovered/Resolved]
  - Eye irritation [Recovered/Resolved]
  - Product prescribing error [Unknown]
  - Product use in unapproved indication [Unknown]
  - Condition aggravated [Recovered/Resolved]

NARRATIVE: CASE EVENT DATE: 20200214
